FAERS Safety Report 19195477 (Version 1)
Quarter: 2021Q2

REPORT INFORMATION
  Report Type: Report from Study
  Country: BR (occurrence: BR)
  Receive Date: 20210429
  Receipt Date: 20210429
  Transmission Date: 20210717
  Serious: Yes (Other)
  Sender: FDA-Public Use
  Company Number: BR-UCBSA-2021019404

PATIENT
  Age: 31 Year
  Sex: Female
  Weight: 75 kg

DRUGS (2)
  1. CERTOLIZUMAB PEGOL ASP [Suspect]
     Active Substance: CERTOLIZUMAB PEGOL
     Indication: ANKYLOSING SPONDYLITIS
     Dosage: 200 MILLIGRAM, EV 15 DAYS
     Route: 058
     Dates: start: 202011
  2. DULOXETINA [DULOXETINE HYDROCHLORIDE] [Concomitant]
     Active Substance: DULOXETINE HYDROCHLORIDE
     Indication: DEPRESSION
     Dosage: UNK
     Route: 048
     Dates: start: 201804

REACTIONS (2)
  - COVID-19 [Not Recovered/Not Resolved]
  - Quarantine [Unknown]

NARRATIVE: CASE EVENT DATE: 202104
